FAERS Safety Report 6242530-6 (Version None)
Quarter: 2009Q2

REPORT INFORMATION
  Report Type: 
  Country: None (occurrence: None)
  Receive Date: 20090624
  Receipt Date: 20090615
  Transmission Date: 20091009
  Serious: Yes (Hospitalization)
  Sender: FDA-Public Use
  Company Number: BR-ROCHE-613724

PATIENT
  Sex: Male
  Weight: 57 kg

DRUGS (2)
  1. PEG-INTERFERON ALFA 2A (RO 25-8310) [Suspect]
     Dosage: PERMANENTLY DISCONTINUED
     Route: 058
     Dates: start: 20081209, end: 20090112
  2. RIBAVIRIN [Suspect]
     Dosage: PERMANENTLY DISCONTINUED, 4 CAPS/DAY
     Route: 048
     Dates: start: 20081209, end: 20090112

REACTIONS (1)
  - HEPATIC FUNCTION ABNORMAL [None]
